FAERS Safety Report 4319641-5 (Version None)
Quarter: 2004Q1

REPORT INFORMATION
  Report Type: 
  Country: None (occurrence: None)
  Receive Date: 20040319
  Receipt Date: 20040305
  Transmission Date: 20041129
  Serious: Yes (Disabling)
  Sender: FDA-Public Use
  Company Number: WAES 0403GBR00077

PATIENT
  Age: 86 Year
  Sex: Male

DRUGS (6)
  1. FOSAMAX [Suspect]
     Indication: OSTEOPOROSIS
     Route: 048
     Dates: start: 20040205, end: 20040206
  2. DILTIAZEM HYDROCHLORIDE [Concomitant]
  3. DIDRONEL [Suspect]
     Indication: OSTEOPOROSIS
     Route: 048
     Dates: start: 20040218, end: 20040219
  4. FUROSEMIDE [Concomitant]
  5. PREDNISOLONE [Concomitant]
  6. WARFARIN [Concomitant]

REACTIONS (1)
  - CONFUSIONAL STATE [None]
